FAERS Safety Report 6980646-7 (Version None)
Quarter: 2010Q3

REPORT INFORMATION
  Report Type: 
  Country: None (occurrence: None)
  Receive Date: 20100914
  Receipt Date: 20100902
  Transmission Date: 20110219
  Serious: No
  Sender: FDA-Public Use
  Company Number: US-B.I. PHARMACEUTICALS,INC./RIDGEFIELD-2010-BP-10151BP

PATIENT
  Sex: Female

DRUGS (7)
  1. SPIRIVA [Suspect]
     Indication: CHRONIC OBSTRUCTIVE PULMONARY DISEASE
     Dosage: 18 MCG
     Route: 055
     Dates: start: 20100401, end: 20100701
  2. SPIRIVA [Suspect]
     Route: 055
     Dates: start: 20100701
  3. SPIRIVA [Suspect]
     Route: 048
     Dates: start: 20100902
  4. ADVAIR DISKUS 100/50 [Concomitant]
     Indication: CHRONIC OBSTRUCTIVE PULMONARY DISEASE
  5. DIOVAN [Concomitant]
     Indication: HYPERTENSION
  6. BUSPAR [Concomitant]
     Indication: GENERALISED ANXIETY DISORDER
  7. XANAX [Concomitant]
     Indication: GENERALISED ANXIETY DISORDER

REACTIONS (3)
  - DRY MOUTH [None]
  - DYSPHONIA [None]
  - INCORRECT ROUTE OF DRUG ADMINISTRATION [None]
